FAERS Safety Report 9522999 (Version 1)
Quarter: 2013Q3

REPORT INFORMATION
  Report Type: Spontaneous
  Country: US (occurrence: US)
  Receive Date: 20130913
  Receipt Date: 20130913
  Transmission Date: 20140515
  Serious: Yes (Hospitalization)
  Sender: FDA-Public Use
  Company Number: US-BAYER-2013-107680

PATIENT
  Age: 69 Year
  Sex: Female

DRUGS (4)
  1. SORAFENIB (RAF KINASE INHIBITOR) [Suspect]
     Indication: RENAL CANCER METASTATIC
     Dosage: 400 MG, BID
  2. ENALAPRIL [Concomitant]
     Dosage: DAILY DOSE 10 MG
     Route: 048
  3. HYDROCHLOROTHIAZIDE [Concomitant]
     Dosage: DAILY DOSE 25 MG
     Route: 048
  4. GLYBURIDE W/METFORMIN [Concomitant]
     Dosage: 2.5/500 MG TWICE DAILY
     Route: 048

REACTIONS (1)
  - Pancreatitis acute [Recovered/Resolved]
